FAERS Safety Report 25890065 (Version 1)
Quarter: 2025Q4

REPORT INFORMATION
  Report Type: Report from Study
  Country: BR (occurrence: BR)
  Receive Date: 20251007
  Receipt Date: 20251007
  Transmission Date: 20260119
  Serious: Yes (Other)
  Sender: RANBAXY
  Company Number: BR-SUN PHARMACEUTICAL INDUSTRIES INC-2025R1-529995

PATIENT
  Age: 67 Year
  Sex: Female

DRUGS (6)
  1. HYDROXYCHLOROQUINE [Suspect]
     Active Substance: HYDROXYCHLOROQUINE
     Indication: Rheumatoid vasculitis
     Dosage: 400 MILLIGRAM, DAILY
     Route: 065
     Dates: start: 201402
  2. HYDROXYCHLOROQUINE [Suspect]
     Active Substance: HYDROXYCHLOROQUINE
     Indication: Lung disorder
     Dosage: UNK
     Route: 065
     Dates: start: 201006, end: 201502
  3. METHOTREXATE [Suspect]
     Active Substance: METHOTREXATE
     Indication: Rheumatoid vasculitis
     Dosage: 17.5-25 MG/ WEEK
     Route: 065
     Dates: start: 200909, end: 201402
  4. METHOTREXATE [Suspect]
     Active Substance: METHOTREXATE
     Dosage: 10 MG/ WEEK
     Route: 065
     Dates: end: 2023
  5. PREDNISONE [Suspect]
     Active Substance: PREDNISONE
     Indication: Polyarthritis
     Dosage: 2.5-10 MG/ DAY
     Route: 065
     Dates: start: 2009, end: 2015
  6. PREDNISONE [Suspect]
     Active Substance: PREDNISONE
     Indication: Dry mouth
     Dosage: UNK
     Route: 065
     Dates: start: 201604

REACTIONS (1)
  - American trypanosomiasis [Unknown]
